FAERS Safety Report 6291472-9 (Version None)
Quarter: 2009Q3

REPORT INFORMATION
  Report Type: 
  Country: None (occurrence: None)
  Receive Date: 20090730
  Receipt Date: 20090723
  Transmission Date: 20100115
  Serious: Yes (Hospitalization)
  Sender: FDA-Public Use
  Company Number: US-BAYER-200912296BCC

PATIENT
  Age: 62 Year
  Sex: Female

DRUGS (2)
  1. ALEVE [Suspect]
     Indication: HEADACHE
     Route: 048
  2. MOTRIN IB [Suspect]
     Indication: HEADACHE
     Route: 048

REACTIONS (1)
  - RENAL FAILURE [None]
